FAERS Safety Report 6614294-5 (Version None)
Quarter: 2010Q1

REPORT INFORMATION
  Report Type: 
  Country: None (occurrence: None)
  Receive Date: 20100303
  Receipt Date: 20100303
  Transmission Date: 20100710
  Serious: Yes (Hospitalization)
  Sender: FDA-Public Use
  Company Number: None

PATIENT
  Sex: Male
  Weight: 95 kg

DRUGS (1)
  1. ARIXTRA [Suspect]
     Indication: PULMONARY EMBOLISM
     Dosage: 7.5 MG DAILY SQ
     Route: 058
     Dates: start: 20100122, end: 20100302

REACTIONS (3)
  - HYPOPHAGIA [None]
  - NAUSEA [None]
  - URINARY TRACT INFECTION [None]
